FAERS Safety Report 6693676-X (Version None)
Quarter: 2010Q2

REPORT INFORMATION
  Report Type: 
  Country: None (occurrence: None)
  Receive Date: 20100423
  Receipt Date: 20100413
  Transmission Date: 20101027
  Serious: Yes (Hospitalization)
  Sender: FDA-Public Use
  Company Number: IN-ELI_LILLY_AND_COMPANY-IN201004000997

PATIENT
  Sex: Female
  Weight: 59 kg

DRUGS (7)
  1. GEMCITABINE HCL [Suspect]
     Indication: BREAST CANCER METASTATIC
     Dosage: 2000MG, ON DAY 1 AND DAY 8 EVERY THREE WEEKS
     Route: 042
     Dates: start: 20100113
  2. GEMCITABINE HCL [Suspect]
     Dosage: UNK, DAY 1 AND DAY 8 EVERY 21 DAYS
     Route: 042
  3. PACLITAXEL [Suspect]
     Indication: BREAST CANCER METASTATIC
     Dosage: 280 MG, DAY 1 EVERY THREE WEEKS
     Route: 042
     Dates: start: 20100113
  4. RANITIDINE [Concomitant]
     Dates: start: 20100318, end: 20100318
  5. GRANISETRON [Concomitant]
     Dates: start: 20100318, end: 20100318
  6. DEXONA [Concomitant]
     Dates: start: 20100318, end: 20100318
  7. AVIL [Concomitant]
     Dates: start: 20100318, end: 20100318

REACTIONS (4)
  - DIARRHOEA [None]
  - FEBRILE NEUTROPENIA [None]
  - NEUTROPENIC INFECTION [None]
  - STOMATITIS [None]
